FAERS Safety Report 5026276-8 (Version None)
Quarter: 2006Q2

REPORT INFORMATION
  Report Type: 
  Country: None (occurrence: None)
  Receive Date: 20060608
  Receipt Date: 20060522
  Transmission Date: 20061013
  Serious: Yes (Hospitalization)
  Sender: FDA-Public Use
  Company Number: DSA_70909_2006

PATIENT
  Age: 70 Year
  Sex: Female

DRUGS (9)
  1. ROXICODONE [Suspect]
     Indication: ANALGESIC EFFECT
     Dosage: DF VARIABLE PO
     Route: 048
  2. OXYCODONE HCL [Suspect]
     Indication: ANALGESIC EFFECT
     Dosage: 40 MG BID PO
     Route: 048
  3. FLUVOXAMINE MALEATE [Suspect]
     Indication: DEPRESSION
     Dosage: 200 MG QAM PO
     Route: 048
  4. DOXEPIN [Suspect]
     Indication: DEPRESSION
     Dosage: 50 MG QHS PO
     Route: 048
  5. DICLOFENAC [Concomitant]
  6. RALOXIFENE [Concomitant]
  7. CALCIUM CARBONATE [Concomitant]
  8. DILTIAZEM CD [Concomitant]
  9. SIMVASTATIN [Concomitant]

REACTIONS (5)
  - ATRIAL FIBRILLATION [None]
  - BLOOD CREATINE PHOSPHOKINASE INCREASED [None]
  - DISTURBANCE IN ATTENTION [None]
  - PYREXIA [None]
  - SEROTONIN SYNDROME [None]
